FAERS Safety Report 7338256-8 (Version None)
Quarter: 2011Q1

REPORT INFORMATION
  Report Type: 
  Country: None (occurrence: None)
  Receive Date: 20110224
  Receipt Date: 20110209
  Transmission Date: 20110831
  Serious: Yes (Other)
  Sender: FDA-Public Use
  Company Number: AUR-APL-2011-00279

PATIENT
  Age: 60 Year

DRUGS (7)
  1. DOXAZOSIN [Suspect]
     Dosage: 4MG, DAILY;
  2. COLCHICINE [Suspect]
     Dosage: 1MG, DAILY;
  3. METFORMIN [Suspect]
     Dosage: 1500MG, DAILY,
  4. ALLOPURINOL [Suspect]
     Dosage: 300MG, DAILY,
  5. VALSARTAN [Suspect]
     Dosage: 120MG, DAILY
  6. CETIRIZINE [Suspect]
     Dosage: 10MG, DAILY,
  7. MIRTAZAPINE [Suspect]

REACTIONS (1)
  - PANCREATITIS ACUTE [None]
